FAERS Safety Report 13820919 (Version 1)
Quarter: 2017Q3

REPORT INFORMATION
  Report Type: Spontaneous
  Country: US (occurrence: US)
  Receive Date: 20170725
  Receipt Date: 20170725
  Transmission Date: 20171127
  Serious: No
  Sender: FDA-Public Use
  Company Number: None

PATIENT
  Age: 74 Year
  Sex: Female
  Weight: 49.95 kg

DRUGS (7)
  1. ELIQUIS [Concomitant]
     Active Substance: APIXABAN
  2. LEVOTHYROXINE. [Concomitant]
     Active Substance: LEVOTHYROXINE
  3. UMCKA THROAT SPRAY [Suspect]
     Active Substance: HOMEOPATHICS
     Indication: OROPHARYNGEAL PAIN
     Dosage: QUANTITY:4 SPRAY(S);?
     Route: 048
     Dates: start: 20170725, end: 20170725
  4. LUMIGAN [Concomitant]
     Active Substance: BIMATOPROST
  5. MULTI VITAMIN/MINERAL SUPPLEMENT CONTAINING VITAMIN C, VITAMIN D, VITAMIN E, THIAMIN, RIBOFLAVIN, NIACIN, PYRIDOXINE, FOLIC ACID, COBALAMIN, BIOTIN, PANTOTHENIC ACID, SELENIUM AND ZINC [Concomitant]
     Active Substance: ASCORBIC ACID\BIOTIN\CHOLECALCIFEROL\COBALAMIN\FOLIC ACID\NIACINAMIDE\PANTOTHENIC ACID\PYRIDOXINE HYDROCHLORIDE\RIBOFLAVIN\SELENOMETHIONINE\THIAMINE\TOCOPHEROL\ZINC OXIDE
  6. MOTROPOL [Concomitant]
  7. VITAMIN D [Concomitant]
     Active Substance: CHOLECALCIFEROL

REACTIONS (2)
  - Dyspnoea [None]
  - Throat tightness [None]

NARRATIVE: CASE EVENT DATE: 20170725
